FAERS Safety Report 5448353-X (Version None)
Quarter: 2007Q3

REPORT INFORMATION
  Report Type: 
  Country: None (occurrence: None)
  Receive Date: 20070906
  Receipt Date: 20070822
  Transmission Date: 20080115
  Serious: Yes (Hospitalization)
  Sender: FDA-Public Use
  Company Number: TCI2007A03154

PATIENT
  Age: 57 Year
  Sex: Male

DRUGS (2)
  1. ACTOS [Suspect]
     Indication: TYPE 2 DIABETES MELLITUS
     Dosage: 15 MG (15 MG, 1 IN 1 D) PER ORAL
     Route: 048
     Dates: start: 20050901, end: 20061201
  2. AMLODIPINE BESYLATE [Concomitant]

REACTIONS (9)
  - ASCITES [None]
  - CARDIAC FAILURE [None]
  - CARDIAC HYPERTROPHY [None]
  - CARDIOMEGALY [None]
  - COUGH [None]
  - OEDEMA PERIPHERAL [None]
  - PERICARDITIS CONSTRICTIVE [None]
  - PLEURAL EFFUSION [None]
  - VENTRICULAR INTERNAL DIAMETER ABNORMAL [None]
